FAERS Safety Report 7610508-3 (Version None)
Quarter: 2011Q3

REPORT INFORMATION
  Report Type: 
  Country: None (occurrence: None)
  Receive Date: 20110715
  Receipt Date: 20110125
  Transmission Date: 20111222
  Serious: Yes (Other)
  Sender: FDA-Public Use
  Company Number: US-BAYER-200940062NA

PATIENT
  Age: 74 Year
  Sex: Female
  Weight: 82.993 kg

DRUGS (34)
  1. COREG [Concomitant]
     Dosage: 12.5 MG, UNK
  2. RED BLOOD CELLS [Concomitant]
     Dosage: 2 U, UNK
     Route: 042
     Dates: start: 20050201
  3. RED BLOOD CELLS [Concomitant]
     Dosage: 1 U, UNK
     Dates: start: 20050203
  4. RED BLOOD CELLS [Concomitant]
     Dosage: 2 U, UNK
     Route: 042
     Dates: start: 20050207
  5. ACETYLSALICYLIC ACID SRT [Concomitant]
     Dosage: 81 MG, QD
     Route: 048
  6. TECHNETIUM 99M MAA [Concomitant]
     Indication: VENTILATION/PERFUSION SCAN
     Dosage: 6.5 MCI, UNK
     Route: 042
     Dates: start: 20050628
  7. LISINOPRIL [Concomitant]
     Dosage: 10 UNK, UNK
  8. FERROUS SULFATE TAB [Concomitant]
     Dosage: 325 MG, UNK
  9. RED BLOOD CELLS [Concomitant]
     Dosage: 2 U, UNK
     Route: 042
     Dates: start: 20050131
  10. RED BLOOD CELLS [Concomitant]
     Dosage: 2 U, UNK
     Route: 042
     Dates: start: 20050211
  11. LEVOFLOXACIN [Concomitant]
     Dosage: 500 MG, QD
     Route: 048
     Dates: start: 20050301
  12. LASIX [Concomitant]
     Dosage: 40 MG, UNK
     Dates: start: 20050630
  13. RED BLOOD CELLS [Concomitant]
     Dosage: 2 U, UNK
     Route: 042
     Dates: start: 20050205
  14. RED BLOOD CELLS [Concomitant]
     Dosage: 2 U, UNK
     Route: 042
     Dates: start: 20050629
  15. MONOPRIL [Concomitant]
     Dosage: 10 MG, QD
     Route: 048
     Dates: start: 20050627
  16. TRASYLOL [Suspect]
     Indication: MITRAL VALVE REPAIR
     Dosage: PUMP PRIME DOSE 200ML, TOTAL 800 ML GIVEN
     Route: 042
     Dates: start: 20050630, end: 20050630
  17. VANCOMYCIN [Concomitant]
     Dosage: 1 G, QD
     Route: 042
     Dates: start: 20050629
  18. HEPARIN [Concomitant]
     Dosage: UNK
     Dates: start: 20050630
  19. PROTAMINE SULFATE [Concomitant]
     Dosage: UNK
     Route: 042
     Dates: start: 20050630
  20. XENON (133 XE) [Concomitant]
     Indication: VENTILATION/PERFUSION SCAN
     Dosage: 24 MCI, UNK
     Route: 055
     Dates: start: 20050628
  21. TRASYLOL [Suspect]
     Indication: COX-MAZE PROCEDURE
  22. ZINACEF [Concomitant]
     Dosage: 1.5 G, UNK
     Route: 042
     Dates: start: 20050630
  23. CONTRAST MEDIA [Concomitant]
     Indication: COMPUTERISED TOMOGRAM
     Dosage: UNK
     Dates: start: 20050620
  24. FUROSEMIDE [Concomitant]
     Dosage: 40 MG, UNK
  25. RED BLOOD CELLS [Concomitant]
     Dosage: 2 U, UNK
     Route: 042
     Dates: start: 20050204
  26. LOVENOX [Concomitant]
     Dosage: 40MG/4ML
     Route: 058
     Dates: start: 20050301
  27. CEFUROXIME [Concomitant]
     Dosage: 1.5 G, UNK
     Route: 042
     Dates: start: 20050630
  28. HEPARIN [Concomitant]
     Dosage: UNK
     Route: 042
     Dates: start: 20050628, end: 20050629
  29. CONTRAST MEDIA [Concomitant]
     Indication: IMAGING PROCEDURE
     Dosage: UNK
     Dates: start: 20050628
  30. TRASYLOL [Suspect]
     Dosage: UNK
  31. LISINOPRIL [Concomitant]
     Dosage: 5-10MG/DAILY
     Route: 048
  32. VANCOMYCIN [Concomitant]
     Dosage: 1 G, UNK
     Route: 042
     Dates: start: 20050630
  33. SOLU-MEDROL [Concomitant]
     Dosage: 1 G, UNK
     Route: 042
     Dates: start: 20050630
  34. RED BLOOD CELLS [Concomitant]
     Dosage: 3 U, UNK
     Route: 042
     Dates: start: 20050130

REACTIONS (11)
  - PAIN [None]
  - ANHEDONIA [None]
  - STRESS [None]
  - RENAL IMPAIRMENT [None]
  - UNEVALUABLE EVENT [None]
  - RENAL FAILURE [None]
  - RENAL INJURY [None]
  - FEAR [None]
  - INJURY [None]
  - ANXIETY [None]
  - EMOTIONAL DISTRESS [None]
